FAERS Safety Report 7581915-2 (Version None)
Quarter: 2011Q2

REPORT INFORMATION
  Report Type: 
  Country: None (occurrence: None)
  Receive Date: 20110629
  Receipt Date: 20110624
  Transmission Date: 20111010
  Serious: Yes (Death, Hospitalization, Other)
  Sender: FDA-Public Use
  Company Number: ES-CELGENEUS-144-50794-10100183

PATIENT
  Age: 78 Year
  Sex: Male

DRUGS (8)
  1. ASPIRIN [Concomitant]
     Route: 065
  2. RED BLOOD CELLS [Concomitant]
     Route: 065
  3. ONDANSETRON [Concomitant]
     Indication: ANTIEMETIC SUPPORTIVE CARE
     Dosage: 16 MILLIGRAM
     Route: 048
  4. VIDAZA [Suspect]
     Dosage: 75 MILLIGRAM/SQ. METER
     Route: 058
     Dates: start: 20080601, end: 20080601
  5. PLATELETS [Concomitant]
     Route: 065
  6. VIDAZA [Suspect]
     Route: 058
     Dates: start: 20080701, end: 20090501
  7. VIDAZA [Suspect]
     Route: 058
     Dates: start: 20090601, end: 20090801
  8. ANTICOAGULANT [Concomitant]
     Route: 065

REACTIONS (3)
  - FEBRILE NEUTROPENIA [None]
  - ACUTE MYELOID LEUKAEMIA RECURRENT [None]
  - PNEUMONIA PNEUMOCOCCAL [None]
